FAERS Safety Report 10516907 (Version 1)
Quarter: 2014Q4

REPORT INFORMATION
  Report Type: Spontaneous
  Country: US (occurrence: None)
  Receive Date: 20141003
  Receipt Date: 20141003
  Transmission Date: 20150528
  Serious: Yes (Other)
  Sender: FDA-Public Use
  Company Number: 1423062

PATIENT
  Age: 50 Year
  Sex: Female

DRUGS (4)
  1. RIBASPHERE [Suspect]
     Active Substance: RIBAVIRIN
     Indication: CHRONIC HEPATITIS C
     Dates: start: 201402, end: 201404
  2. PROVENTIL INHALTER (SALBUTAMOL SULFATE) [Concomitant]
  3. SOFOSBUVIR (SOFOSBUVIR) [Suspect]
     Active Substance: SOFOSBUVIR
     Indication: CHRONIC HEPATITIS C
     Dates: start: 200402, end: 201404
  4. PEGASYS [Suspect]
     Active Substance: PEGINTERFERON ALFA-2A
     Indication: CHRONIC HEPATITIS C
     Dates: start: 201402, end: 201404

REACTIONS (6)
  - Dyspnoea [None]
  - Headache [None]
  - Depression [None]
  - Suicidal ideation [None]
  - Alopecia [None]
  - Wheezing [None]
